FAERS Safety Report 22257995 (Version 1)
Quarter: 2023Q2

REPORT INFORMATION
  Report Type: Spontaneous
  Country: ES (occurrence: ES)
  Receive Date: 20230427
  Receipt Date: 20230427
  Transmission Date: 20230721
  Serious: Yes (Hospitalization, Other)
  Sender: FDA-Public Use
  Company Number: ES-AMGEN-ESPSP2023069947

PATIENT
  Age: 63 Year
  Sex: Male

DRUGS (14)
  1. DARBEPOETIN ALFA [Suspect]
     Active Substance: DARBEPOETIN ALFA
     Indication: Product used for unknown indication
     Dosage: UNK
     Route: 065
  2. MEROPENEM [Concomitant]
     Active Substance: MEROPENEM
     Dosage: UNK
     Dates: start: 20220413
  3. ACETAMINOPHEN [Concomitant]
     Active Substance: ACETAMINOPHEN
     Dosage: UNK
  4. ENOXAPARIN [Concomitant]
     Active Substance: ENOXAPARIN
     Dosage: UNK
  5. INSULIN NOS [Concomitant]
     Active Substance: INSULIN NOS
     Dosage: UNK
  6. OMEPRAZOLE [Concomitant]
     Active Substance: OMEPRAZOLE
     Dosage: UNK
  7. VENLAFAXINE [Concomitant]
     Active Substance: VENLAFAXINE HYDROCHLORIDE
     Dosage: UNK
  8. FUROSEMIDE [Concomitant]
     Active Substance: FUROSEMIDE
     Dosage: UNK
  9. MYCOPHENOLATE MOFETIL [Concomitant]
     Active Substance: MYCOPHENOLATE MOFETIL
     Dosage: UNK
  10. RITUXIMAB [Concomitant]
     Active Substance: RITUXIMAB
     Dosage: 650 MILLIGRAM
  11. PENICILLIN G [Concomitant]
     Active Substance: PENICILLIN G
     Dosage: UNK
  12. AMOXICILLIN [Concomitant]
     Active Substance: AMOXICILLIN
     Dosage: UNK
  13. CEFUROXIME [Concomitant]
     Active Substance: CEFUROXIME
     Dosage: UNK
  14. HISTAMINE [Concomitant]
     Active Substance: HISTAMINE
     Dosage: UNK

REACTIONS (3)
  - Superinfection bacterial [Unknown]
  - Acute generalised exanthematous pustulosis [Unknown]
  - COVID-19 [Unknown]
